FAERS Safety Report 6832619-2 (Version None)
Quarter: 2010Q3

REPORT INFORMATION
  Report Type: 
  Country: None (occurrence: None)
  Receive Date: 20100712
  Receipt Date: 20070319
  Transmission Date: 20110219
  Serious: No
  Sender: FDA-Public Use
  Company Number: US-PFIZER INC-2007021708

PATIENT
  Sex: Female
  Weight: 113.4 kg

DRUGS (5)
  1. CHANTIX [Suspect]
     Indication: SMOKING CESSATION THERAPY
     Dates: start: 20070316
  2. ALBUTEROL [Concomitant]
     Route: 055
  3. FLEXERIL [Concomitant]
  4. SYNTHROID [Concomitant]
  5. LASIX [Concomitant]

REACTIONS (1)
  - PRURITUS [None]
